FAERS Safety Report 17270707 (Version 18)
Quarter: 2022Q3

REPORT INFORMATION
  Report Type: Spontaneous
  Country: US (occurrence: US)
  Receive Date: 20200114
  Receipt Date: 20220913
  Transmission Date: 20221027
  Serious: Yes (Death, Hospitalization, Other)
  Sender: FDA-Public Use
  Company Number: US-SUN PHARMACEUTICAL INDUSTRIES LTD-2019R1-230786

PATIENT
  Sex: Female
  Weight: 35.374 kg

DRUGS (14)
  1. AMBRISENTAN [Suspect]
     Active Substance: AMBRISENTAN
     Indication: Product used for unknown indication
     Dosage: 10 MILLIGRAM, DAILY
     Route: 048
     Dates: start: 20191030
  2. AMBRISENTAN [Suspect]
     Active Substance: AMBRISENTAN
     Dosage: 10 MILLIGRAM, DAILY
     Route: 048
     Dates: start: 20191030
  3. EPOPROSTENOL [Suspect]
     Active Substance: EPOPROSTENOL
     Indication: Pulmonary arterial hypertension
     Dosage: 90 NG/KG/MIN
     Route: 042
     Dates: start: 20210330
  4. EPOPROSTENOL [Suspect]
     Active Substance: EPOPROSTENOL
     Dosage: 83 NG/KG/MIN CONTINUOUS
     Route: 042
     Dates: start: 20210406
  5. EPOPROSTENOL [Suspect]
     Active Substance: EPOPROSTENOL
     Dosage: 81 NG/KG/MIN
     Dates: start: 20210406
  6. EPOPROSTENOL [Suspect]
     Active Substance: EPOPROSTENOL
     Indication: Pulmonary arterial hypertension
     Dosage: 82 NG/KG/MIN
     Route: 042
     Dates: start: 20210406
  7. EPOPROSTENOL [Suspect]
     Active Substance: EPOPROSTENOL
     Dosage: DOSE 82 NG/KG/MIN- CONTINOUS
     Route: 042
     Dates: start: 20210406
  8. EPOPROSTENOL [Suspect]
     Active Substance: EPOPROSTENOL
     Dosage: 82 NG/KG/MIN CONTINUOUS
     Route: 042
     Dates: start: 20210406
  9. EPOPROSTENOL [Suspect]
     Active Substance: EPOPROSTENOL
     Dosage: 82 NG/KG/MIN
     Route: 042
     Dates: start: 20210406
  10. VELETRI [Concomitant]
     Active Substance: EPOPROSTENOL
     Indication: Pulmonary arterial hypertension
     Route: 065
  11. VELETRI [Concomitant]
     Active Substance: EPOPROSTENOL
     Dosage: 84 NG/KG/MIN
     Route: 042
  12. REVATIO [Concomitant]
     Active Substance: SILDENAFIL CITRATE
     Indication: Product used for unknown indication
     Route: 065
  13. WARFARIN [Concomitant]
     Active Substance: WARFARIN
     Indication: Product used for unknown indication
     Route: 065
  14. LETAIRIS [Concomitant]
     Active Substance: AMBRISENTAN
     Indication: Product used for unknown indication

REACTIONS (25)
  - Death [Fatal]
  - Pneumonia [Unknown]
  - Pulmonary mass [Unknown]
  - Haemoptysis [Unknown]
  - Hypokalaemia [Unknown]
  - Thrombocytopenia [Unknown]
  - Peripheral swelling [Unknown]
  - Blood potassium decreased [Unknown]
  - Hypervolaemia [Unknown]
  - Device issue [Unknown]
  - Device malfunction [Unknown]
  - Haemorrhage [Unknown]
  - Thrombosis [Unknown]
  - Neoplasm recurrence [Unknown]
  - Uterine cancer [Unknown]
  - Dyspnoea exertional [Unknown]
  - Palpitations [Unknown]
  - Pain in jaw [Unknown]
  - Pain in extremity [Unknown]
  - Diarrhoea [Unknown]
  - Nausea [Unknown]
  - Dizziness [Unknown]
  - Laryngitis [Unknown]
  - Seasonal allergy [Unknown]
  - Headache [Unknown]

NARRATIVE: CASE EVENT DATE: 20190101
